FAERS Safety Report 25749296 (Version 1)
Quarter: 2025Q3

REPORT INFORMATION
  Report Type: Spontaneous
  Country: US (occurrence: US)
  Receive Date: 20250902
  Receipt Date: 20250902
  Transmission Date: 20251020
  Serious: No
  Sender: BRISTOL-MYERS SQUIBB COMPANY
  Company Number: US-BRISTOL-MYERS SQUIBB COMPANY-2025-121055

PATIENT
  Age: 74 Year
  Sex: Male

DRUGS (1)
  1. CAMZYOS [Suspect]
     Active Substance: MAVACAMTEN
     Indication: Hypertrophic cardiomyopathy
     Dosage: 5 MG DAILY
     Route: 048
     Dates: start: 20250411, end: 20250708

REACTIONS (3)
  - Brain fog [Recovered/Resolved]
  - Cognitive disorder [Recovered/Resolved]
  - Fatigue [Recovered/Resolved]
